FAERS Safety Report 6273220-1 (Version None)
Quarter: 2009Q3

REPORT INFORMATION
  Report Type: 
  Country: None (occurrence: None)
  Receive Date: 20090720
  Receipt Date: 20090708
  Transmission Date: 20100115
  Serious: Yes (Death, Hospitalization)
  Sender: FDA-Public Use
  Company Number: NL-AMGEN-US348548

PATIENT
  Age: 67 Year
  Sex: Female
  Weight: 100 kg

DRUGS (3)
  1. ENBREL [Suspect]
     Indication: RHEUMATOID ARTHRITIS
     Route: 058
     Dates: start: 20071106, end: 20090423
  2. DIOVAN [Concomitant]
     Dosage: 160 MG
     Dates: start: 20030101
  3. PREDNISONE [Concomitant]
     Dates: start: 19910101

REACTIONS (5)
  - DEATH [None]
  - DEMYELINATION [None]
  - INFLAMMATION [None]
  - PARAPARESIS [None]
  - SPINAL CORD INJURY [None]
